FAERS Safety Report 6939179-6 (Version None)
Quarter: 2010Q3

REPORT INFORMATION
  Report Type: 
  Country: None (occurrence: None)
  Receive Date: 20100824
  Receipt Date: 20100812
  Transmission Date: 20110219
  Serious: Yes (Death, Other)
  Sender: FDA-Public Use
  Company Number: US-PFIZER INC-2010105207

PATIENT
  Sex: Male

DRUGS (1)
  1. NEURONTIN [Suspect]
     Dosage: 2400MG PER DAY

REACTIONS (5)
  - AMYOTROPHIC LATERAL SCLEROSIS [None]
  - LUNG DISORDER [None]
  - RADIATION EXPOSURE [None]
  - TIC [None]
  - TONGUE DISORDER [None]
